FAERS Safety Report 21266393 (Version 1)
Quarter: 2022Q3

REPORT INFORMATION
  Report Type: Report from Study
  Country: CA (occurrence: CA)
  Receive Date: 20220829
  Receipt Date: 20220829
  Transmission Date: 20221026
  Serious: Yes (Other)
  Sender: FDA-Public Use
  Company Number: CA-ABBVIE-22K-028-4314049-00

PATIENT
  Sex: Female

DRUGS (4)
  1. RINVOQ [Suspect]
     Active Substance: UPADACITINIB
     Indication: Rheumatoid arthritis
     Route: 048
     Dates: start: 20210101
  2. RINVOQ [Suspect]
     Active Substance: UPADACITINIB
     Route: 048
  3. CANNABIDIOL [Concomitant]
     Active Substance: CANNABIDIOL
     Indication: Product used for unknown indication
  4. PREGABALIN [Concomitant]
     Active Substance: PREGABALIN
     Indication: Product used for unknown indication

REACTIONS (9)
  - Spinal operation [Unknown]
  - Ear infection [Unknown]
  - Hypoacusis [Unknown]
  - Pain in extremity [Recovering/Resolving]
  - Peripheral swelling [Unknown]
  - Breast pain [Unknown]
  - Muscular weakness [Unknown]
  - Breast induration [Unknown]
  - Rheumatoid arthritis [Unknown]

NARRATIVE: CASE EVENT DATE: 20220101
